FAERS Safety Report 26066347 (Version 1)
Quarter: 2025Q4

REPORT INFORMATION
  Report Type: Report from Study
  Country: US (occurrence: US)
  Receive Date: 20251119
  Receipt Date: 20251119
  Transmission Date: 20260119
  Serious: Yes (Hospitalization, Other)
  Sender: PFIZER
  Company Number: US-PFIZER INC-PV202500134634

PATIENT
  Age: 61 Year
  Sex: Male

DRUGS (2)
  1. PROTONIX [Interacting]
     Active Substance: PANTOPRAZOLE SODIUM
     Dosage: UNK
  2. ARCALYST [Interacting]
     Active Substance: RILONACEPT
     Dosage: UNK

REACTIONS (2)
  - Haemoglobin decreased [Unknown]
  - Drug interaction [Unknown]

NARRATIVE: CASE EVENT DATE: 20251103
